FAERS Safety Report 9369202 (Version 3)
Quarter: 2014Q2

REPORT INFORMATION
  Report Type: Spontaneous
  Country: US (occurrence: GB)
  Receive Date: 20130626
  Receipt Date: 20140402
  Transmission Date: 20141212
  Serious: Yes (Hospitalization, Other)
  Sender: FDA-Public Use
  Company Number: PHFR2013GB002811

PATIENT
  Age: 45 Year
  Sex: Male

DRUGS (2)
  1. CLOZARIL [Suspect]
     Indication: SCHIZOPHRENIA
     Dosage: 100 MG, DAILY
     Route: 048
     Dates: start: 20030211, end: 20130322
  2. CLOZARIL [Suspect]
     Dosage: UNK
     Route: 048
     Dates: start: 20130326, end: 201308

REACTIONS (5)
  - Schizophrenia [Not Recovered/Not Resolved]
  - Brain neoplasm [Unknown]
  - Mental disorder [Not Recovered/Not Resolved]
  - Oligodendroglioma [Unknown]
  - Antipsychotic drug level increased [Not Recovered/Not Resolved]
